FAERS Safety Report 14683662 (Version 2)
Quarter: 2018Q1

REPORT INFORMATION
  Report Type: Spontaneous
  Country: CA (occurrence: CA)
  Receive Date: 20180327
  Receipt Date: 20180330
  Transmission Date: 20180509
  Serious: Yes (Other)
  Sender: FDA-Public Use
  Company Number: PHHY2018CA049567

PATIENT
  Sex: Male
  Weight: 100 kg

DRUGS (4)
  1. VOLTAREN [Suspect]
     Active Substance: DICLOFENAC SODIUM
     Indication: PRODUCT USED FOR UNKNOWN INDICATION
     Dosage: 75 MG, BID
     Route: 065
  2. ADVIL [Suspect]
     Active Substance: IBUPROFEN
     Indication: PRODUCT USED FOR UNKNOWN INDICATION
     Dosage: 400 MG, QID
     Route: 065
  3. INFLECTRA [Suspect]
     Active Substance: INFLIXIMAB-DYYB
     Indication: ANKYLOSING SPONDYLITIS
     Dosage: 300 MG, QW2 (0,2,4,6,8)
     Route: 042
  4. MELOXICAM. [Concomitant]
     Active Substance: MELOXICAM
     Indication: ANKYLOSING SPONDYLITIS
     Dosage: 15 MG, BID
     Route: 065

REACTIONS (6)
  - Inflammation [Unknown]
  - Ankylosing spondylitis [Unknown]
  - Pain [Unknown]
  - Musculoskeletal stiffness [Unknown]
  - C-reactive protein increased [Unknown]
  - Drug ineffective [Unknown]
